FAERS Safety Report 18743544 (Version 1)
Quarter: 2021Q1

REPORT INFORMATION
  Report Type: Spontaneous
  Country: US (occurrence: US)
  Receive Date: 20210114
  Receipt Date: 20210114
  Transmission Date: 20210419
  Serious: No
  Sender: FDA-Public Use
  Company Number: US-NOVOPROD-739660

PATIENT
  Age: 48 Year
  Sex: Female

DRUGS (3)
  1. OZEMPIC [Suspect]
     Active Substance: SEMAGLUTIDE
     Indication: TYPE 2 DIABETES MELLITUS
     Dosage: 0.25 MG, QW
     Route: 058
     Dates: start: 20200519, end: 20200604
  2. OZEMPIC [Suspect]
     Active Substance: SEMAGLUTIDE
     Indication: STEATOHEPATITIS
  3. OZEMPIC [Suspect]
     Active Substance: SEMAGLUTIDE
     Indication: OBESITY

REACTIONS (2)
  - Condition aggravated [Unknown]
  - Thyroid mass [Unknown]

NARRATIVE: CASE EVENT DATE: 2020
